FAERS Safety Report 9339350 (Version 4)
Quarter: 2013Q3

REPORT INFORMATION
  Report Type: Spontaneous
  Country: US (occurrence: US)
  Receive Date: 20130610
  Receipt Date: 20130723
  Transmission Date: 20140515
  Serious: Yes (Other)
  Sender: FDA-Public Use
  Company Number: US-AMGEN-USASP2013040553

PATIENT
  Age: 45 Year
  Sex: Male

DRUGS (8)
  1. ENBREL [Suspect]
     Indication: ANKYLOSING SPONDYLITIS
     Dosage: 50 MG, QWK
     Route: 058
     Dates: start: 20130129
  2. HYDROCODONE APAP [Concomitant]
     Indication: PAIN
     Dosage: 5-500 1 TAB TID
     Route: 048
     Dates: start: 20130130
  3. IBUPROFEN [Concomitant]
     Indication: PAIN
     Dosage: 800 MG, BID
     Route: 048
  4. SULFASALAZINE [Concomitant]
     Indication: SPONDYLITIS
     Dosage: 500 MG, BID
     Route: 048
  5. ROSUVASTATIN [Concomitant]
     Indication: BLOOD CHOLESTEROL
     Dosage: 20 MG, QD
     Route: 048
  6. PREDNISONE [Concomitant]
     Indication: SPONDYLOARTHROPATHY
     Dosage: 20 MG, QD 1-2 TAB
  7. INSULIN GLARGINE [Concomitant]
     Dosage: 80 UNIT, QD
  8. LISINOPRIL HCTZ [Concomitant]
     Dosage: 20-25 MG, QD

REACTIONS (4)
  - Loss of consciousness [Not Recovered/Not Resolved]
  - Presyncope [Unknown]
  - Fear of injection [Unknown]
  - Injection site pain [Unknown]
